FAERS Safety Report 13094755 (Version 1)
Quarter: 2017Q1

REPORT INFORMATION
  Report Type: Spontaneous
  Country: FR (occurrence: FR)
  Receive Date: 20170106
  Receipt Date: 20170106
  Transmission Date: 20170428
  Serious: Yes (Hospitalization)
  Sender: FDA-Public Use
  Company Number: FR-009507513-1701FRA003064

PATIENT
  Age: 72 Year
  Sex: Male

DRUGS (7)
  1. JANUVIA [Suspect]
     Active Substance: SITAGLIPTIN PHOSPHATE
     Indication: TYPE 2 DIABETES MELLITUS
     Dosage: 100 MG, PER DAY, START DATE REPORTED AS LONG TERM
     Route: 048
     Dates: end: 20161125
  2. BACTRIM [Suspect]
     Active Substance: SULFAMETHOXAZOLE\TRIMETHOPRIM
     Indication: INFECTION
     Dosage: 800 MG, 2 PER DAY
     Route: 048
     Dates: start: 20160920, end: 20161018
  3. FUCIDINE [Suspect]
     Active Substance: FUSIDIC ACID
     Indication: INFECTION
     Dosage: 250 MG, 4 PER DAY
     Route: 048
     Dates: start: 20160920, end: 20161114
  4. ENALAPRIL EG [Suspect]
     Active Substance: ENALAPRIL
     Indication: HYPERTENSION
     Dosage: 20 MG, PER DAY, START DATE REPORTED AS LONG TERM
     Route: 048
     Dates: end: 20161125
  5. ESIDREX [Suspect]
     Active Substance: HYDROCHLOROTHIAZIDE
     Indication: HYPERTENSION
     Dosage: 12.5 MG, UNK, START DATE REPORTED AS LONG TERM
     Route: 048
     Dates: end: 20161125
  6. CRESTOR [Suspect]
     Active Substance: ROSUVASTATIN CALCIUM
     Indication: HYPERLIPIDAEMIA
     Dosage: 10 MG, PER DAY, START DATE REPORTED AS LONG TERM
     Route: 048
     Dates: end: 20161125
  7. LEVOFLOXACINE MYLAN [Suspect]
     Active Substance: LEVOFLOXACIN
     Indication: INFECTION
     Dosage: 500 MG, 2 PER DAY
     Route: 048
     Dates: start: 20160920, end: 20161114

REACTIONS (3)
  - Neutropenia [Recovered/Resolved]
  - Thrombocytopenia [Recovered/Resolved]
  - Anaemia [Recovered/Resolved]

NARRATIVE: CASE EVENT DATE: 2016
